FAERS Safety Report 5767082-6 (Version None)
Quarter: 2008Q2

REPORT INFORMATION
  Report Type: 
  Country: None (occurrence: None)
  Receive Date: 20080612
  Receipt Date: 20080605
  Transmission Date: 20081010
  Serious: Yes (Other)
  Sender: FDA-Public Use
  Company Number: ES-JNJFOC-20080601484

PATIENT
  Age: 66 Year
  Sex: Female

DRUGS (1)
  1. TOPAMAX [Suspect]
     Indication: HEADACHE
     Route: 048

REACTIONS (1)
  - OPTIC NERVE DISORDER [None]
